FAERS Safety Report 7919289-7 (Version None)
Quarter: 2011Q4

REPORT INFORMATION
  Report Type: 
  Country: None (occurrence: None)
  Receive Date: 20111115
  Receipt Date: 20111115
  Transmission Date: 20120403
  Serious: Yes (Other)
  Sender: FDA-Public Use
  Company Number: None

PATIENT
  Sex: Female
  Weight: 58.0604 kg

DRUGS (2)
  1. VENLAFAXINE [Suspect]
     Indication: MENOPAUSAL SYMPTOMS
     Dosage: ONE Q.D. ORAL (047)
     Route: 048
     Dates: start: 20110801, end: 20111001
  2. VENLAFAXINE [Suspect]
     Indication: ANXIETY
     Dosage: ONE Q.D. ORAL (047)
     Route: 048
     Dates: start: 20110801, end: 20111001

REACTIONS (6)
  - HOT FLUSH [None]
  - NAUSEA [None]
  - ANXIETY [None]
  - HYPERHIDROSIS [None]
  - PRODUCT SUBSTITUTION ISSUE [None]
  - HEADACHE [None]
